FAERS Safety Report 15268803 (Version 3)
Quarter: 2018Q3

REPORT INFORMATION
  Report Type: Report from Study
  Country: None (occurrence: CA)
  Receive Date: 20180813
  Receipt Date: 20180912
  Transmission Date: 20181010
  Serious: Yes (Hospitalization, Disabling, Other)
  Sender: FDA-Public Use
  Company Number: CA-ABBVIE-18K-028-2442403-00

PATIENT
  Age: 43 Year
  Sex: Female

DRUGS (1)
  1. HUMIRA [Suspect]
     Active Substance: ADALIMUMAB
     Indication: CROHN^S DISEASE
     Route: 058
     Dates: start: 20100827, end: 201808

REACTIONS (3)
  - Hepatic vascular thrombosis [Not Recovered/Not Resolved]
  - Deep vein thrombosis [Recovering/Resolving]
  - May-Thurner syndrome [Not Recovered/Not Resolved]

NARRATIVE: CASE EVENT DATE: 2018
